APPROVED DRUG PRODUCT: POSLUMA
Active Ingredient: FLOTUFOLASTAT F-18 GALLIUM
Strength: 25ML (8-158mCi/ML)
Dosage Form/Route: SOLUTION;INTRAVENOUS
Application: N216023 | Product #001
Applicant: BLUE EARTH DIAGNOSTICS LTD
Approved: May 25, 2023 | RLD: Yes | RS: Yes | Type: RX

PATENTS:
Patent 12036290 | Expires: Nov 27, 2041
Patent 12036290 | Expires: Nov 27, 2041
Patent 11413360 | Expires: Nov 22, 2038
Patent 11413360 | Expires: Nov 22, 2038
Patent 12390540 | Expires: Aug 23, 2038
Patent 12357711 | Expires: Nov 22, 2038
Patent 12427207 | Expires: Nov 27, 2041
Patent 12377176 | Expires: Nov 22, 2038

EXCLUSIVITY:
Code: NCE | Date: May 25, 2028